FAERS Safety Report 7748775-8 (Version None)
Quarter: 2011Q3

REPORT INFORMATION
  Report Type: 
  Country: None (occurrence: None)
  Receive Date: 20110913
  Receipt Date: 20110913
  Transmission Date: 20111222
  Serious: Yes (Life-Threatening, Hospitalization)
  Sender: FDA-Public Use
  Company Number: None

PATIENT
  Age: 54 Year
  Sex: Female
  Weight: 81.6 kg

DRUGS (1)
  1. DILAUDID [Suspect]
     Indication: JOINT SURGERY
     Dosage: DILAUDID 2 MG (REC'D 4 DOSES) Q2H PRN; IV
     Route: 042
     Dates: start: 20100603

REACTIONS (2)
  - RESPIRATORY ARREST [None]
  - UNRESPONSIVE TO STIMULI [None]
